FAERS Safety Report 4344326-9 (Version None)
Quarter: 2004Q2

REPORT INFORMATION
  Report Type: 
  Country: None (occurrence: None)
  Receive Date: 20040420
  Receipt Date: 20040425
  Transmission Date: 20050107
  Serious: Yes (Hospitalization)
  Sender: FDA-Public Use
  Company Number: FR-SHR-04-023602

PATIENT
  Age: 72 Year
  Sex: Male

DRUGS (11)
  1. FLUDARA [Suspect]
     Indication: NON-HODGKIN'S LYMPHOMA
     Dosage: 50 MG, CYCLE X 5 D X 12 CYCLES, INTRAVENOUS
     Route: 042
     Dates: start: 19980914, end: 20000721
  2. SECTRAL ^AVENTIS^ (ACEBUTOLOL HYDROCHLORIDE) [Concomitant]
  3. CORVASAL (MOLSIDOMINE) [Concomitant]
  4. PRAVASTATIN SODIUM [Concomitant]
  5. ALLOPURINOL TAB [Concomitant]
  6. RISORDAN [Concomitant]
  7. OMEPRAZOLE [Concomitant]
  8. VENTOLIN [Concomitant]
  9. TRINITRINE [Concomitant]
  10. PERSANTINE [Concomitant]
  11. SYMBICORT (FORMOTEROL FUMARATE) [Concomitant]

REACTIONS (1)
  - ACUTE MYELOID LEUKAEMIA [None]
